FAERS Safety Report 24438684 (Version 1)
Quarter: 2024Q4

REPORT INFORMATION
  Report Type: Spontaneous
  Country: US (occurrence: None)
  Receive Date: 20241013
  Receipt Date: 20241013
  Transmission Date: 20250115
  Serious: Yes (Other)
  Sender: Public
  Company Number: None

PATIENT
  Age: 68 Year
  Sex: Male
  Weight: 90 kg

DRUGS (1)
  1. TACROLIMUS [Suspect]
     Active Substance: TACROLIMUS
     Indication: Lung transplant
     Dates: start: 20240928, end: 20241011

REACTIONS (3)
  - Product dispensing error [None]
  - Incorrect dose administered [None]
  - Drug level increased [None]

NARRATIVE: CASE EVENT DATE: 20241001
